FAERS Safety Report 4426286-5 (Version None)
Quarter: 2004Q3

REPORT INFORMATION
  Report Type: 
  Country: None (occurrence: None)
  Receive Date: 20040811
  Receipt Date: 20040802
  Transmission Date: 20050211
  Serious: Yes (Other)
  Sender: FDA-Public Use
  Company Number: 2004-DE-04202GD

PATIENT
  Age: 7 Year
  Sex: Female

DRUGS (6)
  1. METHOTREXATE [Suspect]
     Indication: PROPHYLAXIS AGAINST TRANSPLANT REJECTION
     Dosage: SHORT-TERM
  2. CYCLOSPORINE [Suspect]
     Indication: PROPHYLAXIS AGAINST TRANSPLANT REJECTION
  3. CYTARABINE [Suspect]
     Indication: ACUTE LYMPHOCYTIC LEUKAEMIA
     Dosage: 30 MG/ME2 EVERY 4 WEEKS AFTER BMT
  4. HYDROCORTISONE [Suspect]
     Indication: ACUTE LYMPHOCYTIC LEUKAEMIA
     Dosage: 50 MG/ME2 EVERY 4 WEEKS AFTER BMT
  5. BUSULPHAN (BUSULFAN) [Suspect]
     Indication: BONE MARROW CONDITIONING REGIMEN
  6. L-PHENYLALANINE MUSTARD (PHENYLALANINE) [Suspect]
     Indication: BONE MARROW CONDITIONING REGIMEN

REACTIONS (1)
  - VENOOCCLUSIVE LIVER DISEASE [None]
